FAERS Safety Report 9881753 (Version 1)
Quarter: 2014Q1

REPORT INFORMATION
  Report Type: Spontaneous
  Country: US (occurrence: US)
  Receive Date: 20140207
  Receipt Date: 20140207
  Transmission Date: 20141002
  Serious: Yes (Death, Hospitalization, Other)
  Sender: FDA-Public Use
  Company Number: US-009507513-1401USA013848

PATIENT
  Age: 45 Year
  Sex: Male

DRUGS (1)
  1. PRINIVIL [Suspect]
     Indication: ESSENTIAL HYPERTENSION
     Dosage: 20 MG, BID
     Route: 048

REACTIONS (10)
  - Neuroendocrine carcinoma [Unknown]
  - Hyperlipidaemia [Unknown]
  - Hepatic cancer metastatic [Unknown]
  - Pancreatic carcinoma metastatic [Unknown]
  - Lung cancer metastatic [Unknown]
  - Renal failure acute [Unknown]
  - Blood potassium increased [Unknown]
  - Ventricular fibrillation [Unknown]
  - Cardiac arrest [Unknown]
  - Death [Fatal]
